FAERS Safety Report 24587924 (Version 2)
Quarter: 2024Q4

REPORT INFORMATION
  Report Type: Spontaneous
  Country: IN (occurrence: IN)
  Receive Date: 20241107
  Receipt Date: 20241119
  Transmission Date: 20250114
  Serious: Yes (Other)
  Sender: RANBAXY
  Company Number: IN-SUN PHARMACEUTICAL INDUSTRIES LTD-2024R1-458693

PATIENT
  Age: 27 Year
  Sex: Male

DRUGS (5)
  1. ATOMOXETINE [Suspect]
     Active Substance: ATOMOXETINE HYDROCHLORIDE
     Indication: Nicotine dependence
     Dosage: 10 MILLIGRAM
     Route: 065
  2. BUPROPION [Suspect]
     Active Substance: BUPROPION
     Indication: Nicotine dependence
     Dosage: 150 MILLIGRAM
     Route: 065
  3. BUPROPION [Suspect]
     Active Substance: BUPROPION
     Indication: Alcohol use
  4. NICOTINE [Suspect]
     Active Substance: NICOTINE
     Indication: Nicotine dependence
     Dosage: 14 MILLIGRAM, DAILY
     Route: 065
  5. NICOTINE [Suspect]
     Active Substance: NICOTINE
     Indication: Alcohol use

REACTIONS (2)
  - Dysuria [Recovered/Resolved]
  - Painful ejaculation [Recovered/Resolved]
